FAERS Safety Report 16898686 (Version 1)
Quarter: 2019Q4

REPORT INFORMATION
  Report Type: Report from Study
  Country: US (occurrence: US)
  Receive Date: 20191009
  Receipt Date: 20191009
  Transmission Date: 20200122
  Serious: No
  Sender: FDA-Public Use
  Company Number: US-BEH-2019106973

PATIENT
  Age: 47 Year
  Sex: Male
  Weight: 84.35 kg

DRUGS (2)
  1. HIZENTRA [Suspect]
     Active Substance: HUMAN IMMUNOGLOBULIN G
     Dosage: 10 GRAM, TOT
     Route: 065
     Dates: start: 20191001, end: 20191001
  2. HIZENTRA [Suspect]
     Active Substance: HUMAN IMMUNOGLOBULIN G
     Dosage: 10 GRAM, QW
     Route: 065

REACTIONS (2)
  - Administration site swelling [Unknown]
  - Contusion [Unknown]

NARRATIVE: CASE EVENT DATE: 201910
